FAERS Safety Report 9785231 (Version 2)
Quarter: 2014Q1

REPORT INFORMATION
  Report Type: Spontaneous
  Country: US (occurrence: None)
  Receive Date: 20131224
  Receipt Date: 20140207
  Transmission Date: 20141002
  Serious: Yes (Hospitalization)
  Sender: FDA-Public Use
  Company Number: 2013US002887

PATIENT
  Age: 66 Year
  Sex: Male
  Weight: 84 kg

DRUGS (11)
  1. PONATINIB (AP24534) TABLET [Suspect]
     Indication: CHRONIC MYELOID LEUKAEMIA
     Route: 048
     Dates: start: 20110203, end: 20131209
  2. AMLODIPIN (AMLODIPINE MALEATE) [Concomitant]
  3. VITAMIN C (VITAMIN C) [Concomitant]
  4. VITAMIN D (COLECALCIFEROL0 [Concomitant]
  5. PLAVIX (CLOPIDOGREL BISULFATE) [Concomitant]
  6. PRADAXA (DABIGATRAN ETEXILATE MESILATE) [Concomitant]
  7. HYDROCHLOROTHIAZIDE (HYDROCHLOROTHIAZIDE) [Concomitant]
  8. LOSARTAN (LOSARTAN POTASSIUM) [Concomitant]
  9. SIMVASTATIN (SIMVASTATIN) [Concomitant]
  10. ALDACTONE (SPIRONOLACTONE) [Concomitant]
  11. METOPROLOL (METOPROLOL TARTRATE) [Concomitant]

REACTIONS (16)
  - Coronary artery occlusion [None]
  - Nausea [None]
  - Cardiac aneurysm [None]
  - Blood pressure increased [None]
  - Left ventricular hypertrophy [None]
  - Diastolic dysfunction [None]
  - Left atrial dilatation [None]
  - Ventricular tachycardia [None]
  - Aortic arteriosclerosis [None]
  - Tricuspid valve incompetence [None]
  - Coronary artery stenosis [None]
  - Coronary ostial stenosis [None]
  - Myocardial ischaemia [None]
  - Ventricular fibrillation [None]
  - Carotid artery stenosis [None]
  - Left ventricular dysfunction [None]
